FAERS Safety Report 8783015 (Version 1)
Quarter: 2012Q4

REPORT INFORMATION
  Report Type: 
  Country: TW (occurrence: TW)
  Receive Date: 20120913
  Receipt Date: 20120913
  Transmission Date: 20130627
  Serious: Yes (Other)
  Sender: FDA-Public Use
  Company Number: TW-UCBSA-065381

PATIENT
  Age: 31 Year
  Sex: Male

DRUGS (10)
  1. LEVETIRACETAM [Suspect]
     Indication: TEMPORAL LOBE EPILEPSY
  2. PHENYTOIN [Suspect]
     Indication: TEMPORAL LOBE EPILEPSY
  3. TOPIRAMATE [Suspect]
     Indication: TEMPORAL LOBE EPILEPSY
     Dosage: DAILY DOSE: 200 MG
  4. TOPIRAMATE [Suspect]
     Indication: TEMPORAL LOBE EPILEPSY
     Dosage: DAILY DOSE: 25 MG/DAY
  5. GABAPENTIN [Suspect]
     Dosage: UP TO 2700 MG/DAY
  6. GABAPENTIN [Suspect]
     Dosage: TAPERED OFF GRADUALLY
  7. CLONAZEPAM [Concomitant]
     Dosage: DAILY DOSE:1.5 MG/DAY
  8. ALPROSTADIL [Concomitant]
  9. SERTRALINE [Concomitant]
     Dosage: DAILY DOSE: 50 MG/DAY
  10. FLUOXETINE [Concomitant]
     Dosage: DAILY DOSE: 20 MG/DAY

REACTIONS (4)
  - Agranulocytosis [Unknown]
  - Erectile dysfunction [Recovered/Resolved]
  - Prostatitis [Unknown]
  - Premature ejaculation [Recovered/Resolved]
